FAERS Safety Report 16936211 (Version 4)
Quarter: 2019Q4

REPORT INFORMATION
  Report Type: Report from Study
  Country: None (occurrence: US)
  Receive Date: 20191018
  Receipt Date: 20191114
  Transmission Date: 20200122
  Serious: Yes (Hospitalization)
  Sender: FDA-Public Use
  Company Number: US-INSMED, INC.-US-INS-19-03063

PATIENT
  Sex: Female

DRUGS (3)
  1. ARIKAYCE [Suspect]
     Active Substance: AMIKACIN
     Indication: MYCOBACTERIUM AVIUM COMPLEX INFECTION
     Route: 055
     Dates: start: 20190823, end: 20191008
  2. LAMIRA NEBULIZER SYSTEM [Suspect]
     Active Substance: DEVICE
  3. ANAPEN [Concomitant]
     Indication: PRODUCT USED FOR UNKNOWN INDICATION

REACTIONS (6)
  - Post-tussive vomiting [Unknown]
  - Pneumonia [Unknown]
  - Gait disturbance [Recovered/Resolved]
  - Ototoxicity [Not Recovered/Not Resolved]
  - Lung abscess [Unknown]
  - Choking [Unknown]

NARRATIVE: CASE EVENT DATE: 2019
